FAERS Safety Report 5343631-7 (Version None)
Quarter: 2007Q2

REPORT INFORMATION
  Report Type: 
  Country: None (occurrence: None)
  Receive Date: 20070531
  Receipt Date: 20070515
  Transmission Date: 20071010
  Serious: Yes (Hospitalization)
  Sender: FDA-Public Use
  Company Number: 2007JP002192

PATIENT
  Sex: Male
  Weight: 60 kg

DRUGS (1)
  1. PROGRAF [Suspect]
     Dosage: ORAL
     Route: 048
     Dates: start: 20051103

REACTIONS (5)
  - BLOOD CALCIUM INCREASED [None]
  - DIARRHOEA [None]
  - HYDRONEPHROSIS [None]
  - HYPOVOLAEMIA [None]
  - VOMITING [None]
